FAERS Safety Report 9594421 (Version 1)
Quarter: 2013Q3

REPORT INFORMATION
  Report Type: Spontaneous
  Country: US (occurrence: None)
  Receive Date: 20130927
  Receipt Date: 20130927
  Transmission Date: 20140515
  Serious: No
  Sender: FDA-Public Use
  Company Number: CABO-13003051

PATIENT
  Age: 74 Year
  Sex: Male
  Weight: 85.5 kg

DRUGS (19)
  1. COMETRIQ [Suspect]
     Indication: RENAL CANCER
     Dosage: 60 MG, QD, ORAL
     Route: 048
     Dates: start: 20130702, end: 20130724
  2. METFORMIN (METFORMIN) [Concomitant]
  3. CIPROFLOXACIN (CIPROFLOXACIN) [Concomitant]
  4. TAMSULOSIN (TAMSULOSIN) [Concomitant]
  5. XGEVA (DENOSUMAB) [Concomitant]
  6. LORAZEPAM (LORAZEPAM) [Concomitant]
  7. PROCHLORPERAZINE (PROCHLORPERAZINE) [Concomitant]
  8. LYRICA (PREGABALIN) [Concomitant]
  9. FENTANYL (FENTANYL) [Concomitant]
  10. MORPHINE (MORPHINE) [Concomitant]
  11. OXYCODONE (OXYCODONE) [Concomitant]
  12. COQ-10 (UBIDECARENONE) [Concomitant]
  13. B-12 (CYANOCOBALAMIN) [Concomitant]
  14. B6 (PYRIDOXINE HYDROCHLORIDE) [Concomitant]
  15. VITAMIN D3 (COLECALCIFEROL) [Concomitant]
  16. MELATONIN (MELATONIN) [Concomitant]
  17. CENTRUM SILVER (ASCORBIC ACID, CALCIUM, MINERALS NOS, RETINOL, TOCOPHERYL ACETATE, VITAMIN B NOS, VITAMINS NOS, ZINC) [Concomitant]
  18. CALCIUM (CALCIUM) [Concomitant]
  19. MIRALAX (MIRALAX) [Concomitant]

REACTIONS (3)
  - Tumour pain [None]
  - No therapeutic response [None]
  - Palmar-plantar erythrodysaesthesia syndrome [None]
